FAERS Safety Report 10152775 (Version 1)
Quarter: 2014Q2

REPORT INFORMATION
  Report Type: Spontaneous
  Country: BR (occurrence: BR)
  Receive Date: 20140505
  Receipt Date: 20140505
  Transmission Date: 20141212
  Serious: Yes (Hospitalization, Other)
  Sender: FDA-Public Use
  Company Number: BR-PFIZER INC-2014120140

PATIENT
  Age: 87 Year
  Sex: Female
  Weight: 48 kg

DRUGS (8)
  1. LIPITOR [Suspect]
     Indication: BLOOD CHOLESTEROL
     Dosage: 20 MG, 1X/DAY
     Route: 048
     Dates: start: 20090130
  2. LYRICA [Suspect]
     Indication: NEUROPATHY PERIPHERAL
     Dosage: 75 MG, 2X/DAY
     Route: 048
     Dates: start: 20140228
  3. LYRICA [Suspect]
     Indication: PAIN
  4. CEBRALAT [Concomitant]
     Indication: AORTIC THROMBOSIS
     Dosage: 1 DF, DAILY
     Dates: start: 2009
  5. SEROQUEL [Concomitant]
     Dosage: 0.5 DF, DAILY
     Dates: start: 201402
  6. LEXOTAN [Concomitant]
     Indication: SLEEP DISORDER
     Dosage: 1 DF, DAILY
     Dates: start: 2011
  7. OMEPRAZOLE [Concomitant]
     Indication: GASTRITIS PROPHYLAXIS
     Dosage: 2 DF, DAILY
     Dates: start: 201210
  8. SOMALGIN CARDIO [Concomitant]
     Indication: CARDIAC DISORDER
     Dosage: 1 DF, DAILY

REACTIONS (5)
  - Pneumonia [Unknown]
  - Arrhythmia [Unknown]
  - Pain [Unknown]
  - Diarrhoea [Unknown]
  - Neuropathy peripheral [Not Recovered/Not Resolved]
